FAERS Safety Report 8458893-7 (Version None)
Quarter: 2012Q2

REPORT INFORMATION
  Report Type: 
  Country: None (occurrence: None)
  Receive Date: 20120622
  Receipt Date: 20120612
  Transmission Date: 20120825
  Serious: Yes (Hospitalization)
  Sender: FDA-Public Use
  Company Number: US-BAYER-2012-022098

PATIENT
  Age: 18 Year
  Sex: Female

DRUGS (6)
  1. MINOCIN [Concomitant]
     Dosage: 100 MG, UNK
     Route: 048
  2. YAZ [Suspect]
     Indication: ACNE
     Dosage: UNK
     Route: 048
     Dates: start: 20080801
  3. YASMIN [Suspect]
     Dosage: UNK
     Route: 048
     Dates: start: 20080801
  4. NAPROSYN [Concomitant]
     Dosage: 500 MG, UNK
     Route: 048
     Dates: start: 20081204
  5. MOTRIN [Concomitant]
     Dosage: UNK
     Dates: start: 20081204
  6. MEDROL [Concomitant]

REACTIONS (5)
  - INJURY [None]
  - DEEP VEIN THROMBOSIS [None]
  - PULMONARY EMBOLISM [None]
  - PAIN [None]
  - FEAR [None]
